FAERS Safety Report 4648460-5 (Version None)
Quarter: 2005Q2

REPORT INFORMATION
  Report Type: 
  Country: None (occurrence: None)
  Receive Date: 20050427
  Receipt Date: 20050412
  Transmission Date: 20051028
  Serious: Yes (Life-Threatening, Hospitalization)
  Sender: FDA-Public Use
  Company Number: JP-SHR-03-003925

PATIENT
  Age: 65 Year
  Sex: Male

DRUGS (12)
  1. BETAFERON (INTERFERON BETA - 1B) INJECTION [Suspect]
     Indication: MULTIPLE SCLEROSIS
     Dosage: SEE IMAGE
     Route: 058
     Dates: start: 20030112, end: 20030112
  2. BETAFERON (INTERFERON BETA - 1B) INJECTION [Suspect]
     Indication: MULTIPLE SCLEROSIS
     Dosage: SEE IMAGE
     Route: 058
     Dates: start: 20030114, end: 20030310
  3. MAGNESIUM OXIDE (MAGNESIUM OXIDE) [Concomitant]
  4. FAMOTIDINE [Concomitant]
  5. FERROGRADUMET (FERROUS SULFATE) [Concomitant]
  6. MUCOSTA (REBAMIPIDE) [Concomitant]
  7. TEGRETOL [Concomitant]
  8. PRIMPERAN TAB [Concomitant]
  9. EURODIN (ESTAZOLAM) [Concomitant]
  10. METHYCOBAL (MECOBALAMIN) [Concomitant]
  11. PAXIL [Concomitant]
  12. VOLTAREN [Concomitant]

REACTIONS (5)
  - ACUTE RESPIRATORY FAILURE [None]
  - BLOOD SODIUM DECREASED [None]
  - DEPRESSED LEVEL OF CONSCIOUSNESS [None]
  - DRUG ERUPTION [None]
  - PNEUMONIA KLEBSIELLA [None]
